FAERS Safety Report 12637449 (Version 2)
Quarter: 2016Q3

REPORT INFORMATION
  Report Type: Spontaneous
  Country: US (occurrence: US)
  Receive Date: 20160809
  Receipt Date: 20160825
  Transmission Date: 20161109
  Serious: No
  Sender: FDA-Public Use
  Company Number: US-BEH-2016062483

PATIENT
  Sex: Female
  Weight: 49.9 kg

DRUGS (25)
  1. PRIVIGEN [Suspect]
     Active Substance: HUMAN IMMUNOGLOBULIN G
     Indication: IMMUNODEFICIENCY COMMON VARIABLE
     Dosage: 25 G, QMT
     Route: 042
  2. NASONEX [Concomitant]
     Active Substance: MOMETASONE FUROATE
  3. CITALOPRAM [Concomitant]
     Active Substance: CITALOPRAM HYDROBROMIDE
  4. DULERA [Concomitant]
     Active Substance: FORMOTEROL FUMARATE DIHYDRATE\MOMETASONE FUROATE
  5. ZYRTEC [Concomitant]
     Active Substance: CETIRIZINE HYDROCHLORIDE
  6. EPIPEN [Concomitant]
     Active Substance: EPINEPHRINE
  7. CLONAZEPAM. [Concomitant]
     Active Substance: CLONAZEPAM
  8. PROBIOTIC [Concomitant]
     Active Substance: PROBIOTICS NOS
  9. MELATONIN [Concomitant]
     Active Substance: MELATONIN
  10. FIBER [Concomitant]
     Active Substance: PSYLLIUM HUSK
  11. BOTOX [Concomitant]
     Active Substance: ONABOTULINUMTOXINA
  12. ACETAMINOPHEN. [Concomitant]
     Active Substance: ACETAMINOPHEN
  13. MIGRANAL [Concomitant]
     Active Substance: DIHYDROERGOTAMINE MESYLATE
  14. PROMETHAZINE [Concomitant]
     Active Substance: PROMETHAZINE\PROMETHAZINE HYDROCHLORIDE
  15. IBUPROFEN. [Concomitant]
     Active Substance: IBUPROFEN
  16. LAMOTRIGINE. [Concomitant]
     Active Substance: LAMOTRIGINE
  17. GABAPENTIN. [Concomitant]
     Active Substance: GABAPENTIN
  18. ONDANSETRON [Concomitant]
     Active Substance: ONDANSETRON
  19. SODIUM CHLORIDE. [Concomitant]
     Active Substance: SODIUM CHLORIDE
  20. IRON [Concomitant]
     Active Substance: IRON
  21. AZELASTINE [Concomitant]
     Active Substance: AZELASTINE
  22. EPIDUO [Concomitant]
     Active Substance: ADAPALENE\BENZOYL PEROXIDE
  23. EXCEDRIN EXTRA STRENGTH [Concomitant]
     Active Substance: ACETAMINOPHEN\ASPIRIN\CAFFEINE
  24. PROAIR HFA [Concomitant]
     Active Substance: ALBUTEROL SULFATE
  25. DIPHENHYDRAMINE. [Concomitant]
     Active Substance: DIPHENHYDRAMINE

REACTIONS (2)
  - Chest discomfort [Unknown]
  - Cough [Unknown]
